FAERS Safety Report 17403771 (Version 1)
Quarter: 2020Q1

REPORT INFORMATION
  Report Type: Spontaneous
  Country: GB (occurrence: GB)
  Receive Date: 20200211
  Receipt Date: 20200211
  Transmission Date: 20200409
  Serious: Yes (Disabling)
  Sender: FDA-Public Use
  Company Number: GB-TEVA-2020-GB-1183690

PATIENT
  Age: 67 Year
  Sex: Female

DRUGS (29)
  1. PARACETAMOL [Concomitant]
     Active Substance: ACETAMINOPHEN
     Dosage: 4-6 HOURLY , 1 GRAM
     Dates: start: 20191020
  2. SODIUM VALPROATE [Concomitant]
     Active Substance: VALPROATE SODIUM
     Dosage: 2400 MG 24 HOURS
     Route: 042
     Dates: start: 20191029
  3. PHENOBARBITAL. [Concomitant]
     Active Substance: PHENOBARBITAL
     Indication: EPILEPSY
     Dosage: 120 MG 1 DAYS
     Dates: start: 20191015, end: 20191101
  4. LANSOPRAZOLE. [Suspect]
     Active Substance: LANSOPRAZOLE
     Route: 065
  5. SODIUM VALPROATE [Concomitant]
     Active Substance: VALPROATE SODIUM
     Indication: EPILEPSY
     Dosage: 2400 MG 24 HOURS
     Dates: start: 20191014, end: 20191029
  6. NOREPINEPHRINE. [Concomitant]
     Active Substance: NOREPINEPHRINE
  7. AMOXICILLIN. [Suspect]
     Active Substance: AMOXICILLIN
     Route: 065
  8. PANTOPRAZOLE [Concomitant]
     Active Substance: PANTOPRAZOLE
     Dosage: 40 MG
     Route: 042
     Dates: end: 20191027
  9. FLUCLOXACILLIN [Suspect]
     Active Substance: FLUCLOXACILLIN
     Indication: ANTIBIOTIC THERAPY
     Dosage: 4 GRAM 1 DAYS
     Route: 065
     Dates: start: 20191022, end: 20191027
  10. LEVETIRACETAM. [Concomitant]
     Active Substance: LEVETIRACETAM
     Indication: EPILEPSY
     Dosage: PREADMISSION 500MG BD ORALLY, INCREASED TO IV 750MG BD ON ADMISSION. INCREASED TO 1G BD ON 23/10
  11. MIDAZOLAM HYDROCHLORIDE. [Concomitant]
     Active Substance: MIDAZOLAM HYDROCHLORIDE
  12. LACTULOSE. [Concomitant]
     Active Substance: LACTULOSE
     Indication: GASTROINTESTINAL DISORDER
  13. METOCLOPRAMIDE. [Concomitant]
     Active Substance: METOCLOPRAMIDE
     Indication: FEEDING DISORDER
     Dates: start: 20191024, end: 20191027
  14. CO-AMOXICLAV [Suspect]
     Active Substance: AMOXICILLIN\CLAVULANATE POTASSIUM
     Indication: PNEUMONIA
     Dosage: 3.6 GRAM 1 DAYS
     Route: 042
     Dates: start: 20191018, end: 20191022
  15. THIOPENTAL [Suspect]
     Active Substance: THIOPENTAL
     Route: 065
  16. ALFENTANIL. [Concomitant]
     Active Substance: ALFENTANIL
  17. DEXAMETHASONE. [Concomitant]
     Active Substance: DEXAMETHASONE
     Dosage: 8 MG 1 DAYS
     Dates: end: 20191011
  18. AMILORIDE [Concomitant]
     Active Substance: AMILORIDE
     Indication: OEDEMA PERIPHERAL
     Dosage: 5 MG 1 DAYS
     Dates: start: 20191022, end: 20191101
  19. METOCLOPRAMIDE. [Concomitant]
     Active Substance: METOCLOPRAMIDE
     Indication: FEEDING DISORDER
     Dates: start: 20191016, end: 20191020
  20. LANSOPRAZOLE. [Concomitant]
     Active Substance: LANSOPRAZOLE
     Dosage: 30 MG 1 DAYS
     Dates: end: 2019
  21. DALTEPARIN [Concomitant]
     Active Substance: DALTEPARIN
     Dosage: 5000 IU 1 DAYS
     Dates: start: 20191015
  22. PROPOFOL. [Concomitant]
     Active Substance: PROPOFOL
     Dates: start: 20191108, end: 20191111
  23. DEXAMETHASONE. [Concomitant]
     Active Substance: DEXAMETHASONE
     Dosage: REDUCING COURSE
     Dates: start: 20191011, end: 20191023
  24. OMEPRAZOLE. [Concomitant]
     Active Substance: OMEPRAZOLE
     Dosage: 20 MG 1 DAYS
  25. CASSIA [Concomitant]
     Indication: GASTROINTESTINAL DISORDER
  26. GENTAMICIN. [Concomitant]
     Active Substance: GENTAMICIN
     Indication: ANTIBIOTIC THERAPY
     Dosage: AS PER CALCULATOR
     Dates: start: 20191027, end: 20191101
  27. KETAMINE [Concomitant]
     Active Substance: KETAMINE
     Indication: STATUS EPILEPTICUS
     Dates: start: 20191023, end: 20191025
  28. MACROGOL 3350 [Concomitant]
     Active Substance: POLYETHYLENE GLYCOL 3350
     Indication: GASTROINTESTINAL DISORDER
  29. PHENYTOIN. [Concomitant]
     Active Substance: PHENYTOIN
     Indication: EPILEPSY
     Dosage: 150MG 4 TIMES DAILY, FOLLOWING INCREASE ON 3/11 AS ADJUSTED LEVEL LOW AT 11 (AIMING 20-25).
     Dates: start: 20191011

REACTIONS (1)
  - Swollen tongue [Not Recovered/Not Resolved]

NARRATIVE: CASE EVENT DATE: 20191029
